FAERS Safety Report 19151392 (Version 2)
Quarter: 2021Q2

REPORT INFORMATION
  Report Type: Report from Study
  Country: CN (occurrence: CN)
  Receive Date: 20210419
  Receipt Date: 20210602
  Transmission Date: 20210717
  Serious: Yes (Hospitalization)
  Sender: FDA-Public Use
  Company Number: CN-NOVOPROD-801657

PATIENT
  Age: 57 Year
  Sex: Male
  Weight: 86 kg

DRUGS (5)
  1. IDEG PDS290 [Suspect]
     Active Substance: INSULIN DEGLUDEC
     Indication: DIABETES MELLITUS
     Dosage: 24.0,U,ONCE PER DAY
     Route: 058
     Dates: start: 20201023, end: 20210403
  2. FIASP 3ML PDS290 [Suspect]
     Active Substance: INSULIN ASPART
     Indication: DIABETES MELLITUS
     Dosage: 42.0,U,3 TIMES PER DAY
     Route: 058
     Dates: start: 20201217, end: 20210404
  3. FIASP 3ML PDS290 [Suspect]
     Active Substance: INSULIN ASPART
     Dosage: 41.0,U,3 TIMES PER DAY
     Route: 058
     Dates: start: 20210404
  4. NOVORAPID [Suspect]
     Active Substance: INSULIN ASPART
     Indication: DIABETES MELLITUS
     Dosage: 15.0,U,3 TIMES PER DAY
     Route: 058
     Dates: start: 20201023, end: 20201217
  5. IDEG PDS290 [Suspect]
     Active Substance: INSULIN DEGLUDEC
     Dosage: 24.0,U,ONCE PER DAY
     Route: 058
     Dates: start: 20210404

REACTIONS (1)
  - Hypoglycaemic coma [Recovered/Resolved]

NARRATIVE: CASE EVENT DATE: 20210403
